FAERS Safety Report 8267783-4 (Version None)
Quarter: 2012Q2

REPORT INFORMATION
  Report Type: 
  Country: None (occurrence: None)
  Receive Date: 20120409
  Receipt Date: 20120329
  Transmission Date: 20120825
  Serious: Yes (Hospitalization)
  Sender: FDA-Public Use
  Company Number: US-BAYER-2012-031656

PATIENT
  Age: 33 Year
  Sex: Female
  Weight: 52 kg

DRUGS (5)
  1. VITAMIN D + CALCIUM [Concomitant]
  2. MULTIVITAMINS, COMBINATIONS [Concomitant]
  3. FORTEO [Concomitant]
     Indication: OSTEOPOROSIS
  4. YAZ [Suspect]
     Indication: BONE DENSITY DECREASED
  5. AMBIEN [Concomitant]

REACTIONS (1)
  - DEEP VEIN THROMBOSIS [None]
